FAERS Safety Report 19759174 (Version 2)
Quarter: 2021Q3

REPORT INFORMATION
  Report Type: Spontaneous
  Country: US (occurrence: US)
  Receive Date: 20210827
  Receipt Date: 20210924
  Transmission Date: 20211014
  Serious: Yes (Other)
  Sender: FDA-Public Use
  Company Number: US-INTRA-CELLULAR THERAPIES, INC.-2021ICT00371

PATIENT
  Sex: Male
  Weight: 65.76 kg

DRUGS (7)
  1. INVEGA TRINZA LAI [Concomitant]
  2. BENZTROPINE. [Concomitant]
     Active Substance: BENZTROPINE
     Dosage: 2 MG, 2X/DAY
  3. BIOTENE NOS [Concomitant]
     Active Substance: CETYLPYRIDINIUM CHLORIDE OR SODIUM FLUORIDE OR SODIUM MONOFLUOROPHOSPHATE OR GLUCOSE OXIDASE\LACTOFERRIN\LACTOPEROXIDASE BOVINE\LYSOZYME
  4. MIRALAX [Concomitant]
     Active Substance: POLYETHYLENE GLYCOL 3350
     Dosage: 17 GRAMS AS NEEDED
  5. RISPERDAL [Concomitant]
     Active Substance: RISPERIDONE
     Dosage: 4 MG, 2X/DAY
  6. CAPLYTA [Suspect]
     Active Substance: LUMATEPERONE
     Indication: SCHIZOPHRENIA
     Dosage: 42 MG, 1X/DAY
     Route: 048
     Dates: start: 20210630
  7. HALDOL [Concomitant]
     Active Substance: HALOPERIDOL
     Dosage: 20 MG EVERY AM, 1200, 2000

REACTIONS (1)
  - Blindness transient [Recovered/Resolved]
